FAERS Safety Report 5004334-1 (Version None)
Quarter: 2006Q2

REPORT INFORMATION
  Report Type: 
  Country: None (occurrence: None)
  Receive Date: 20060517
  Receipt Date: 20060117
  Transmission Date: 20061013
  Serious: Yes (Hospitalization)
  Sender: FDA-Public Use
  Company Number: US-MERCK-0601USA02184

PATIENT
  Age: 53 Year
  Sex: Male
  Weight: 95 kg

DRUGS (11)
  1. VIOXX [Suspect]
     Route: 048
     Dates: start: 20030501, end: 20040201
  2. LANTUS [Concomitant]
     Indication: DIABETES MELLITUS
     Route: 065
  3. TRICOR [Concomitant]
     Indication: BLOOD CHOLESTEROL
     Route: 065
     Dates: start: 19940101
  4. PRINIVIL [Concomitant]
     Indication: HYPERTENSION
     Route: 048
     Dates: start: 20000101
  5. NOVOLOG [Concomitant]
     Indication: DIABETES MELLITUS
     Route: 065
  6. LIPITOR [Concomitant]
     Indication: BLOOD CHOLESTEROL
     Route: 065
  7. ACTOS [Concomitant]
     Indication: DIABETES MELLITUS
     Route: 065
  8. HUMULIN [Concomitant]
     Indication: DIABETES MELLITUS
     Route: 065
  9. HUMALOG [Concomitant]
     Indication: DIABETES MELLITUS
     Route: 065
  10. NIASPAN [Concomitant]
     Indication: DIABETES MELLITUS
     Route: 065
  11. PLAVIX [Concomitant]
     Indication: CEREBROVASCULAR ACCIDENT
     Route: 065
     Dates: start: 20031101

REACTIONS (2)
  - CEREBROVASCULAR ACCIDENT [None]
  - SLEEP APNOEA SYNDROME [None]
